FAERS Safety Report 9882880 (Version 2)
Quarter: 2014Q1

REPORT INFORMATION
  Report Type: Other
  Country: US (occurrence: US)
  Receive Date: 20140207
  Receipt Date: 20140207
  Transmission Date: 20141002
  Serious: No
  Sender: FDA-Public Use
  Company Number: US-ACORDA-ACO_38718_2013

PATIENT
  Sex: Male

DRUGS (1)
  1. AMPYRA [Suspect]
     Indication: NYSTAGMUS
     Dosage: 10 MG, Q 12 HRS
     Route: 065
     Dates: start: 20130923, end: 20131111

REACTIONS (1)
  - Drug ineffective for unapproved indication [Unknown]
